FAERS Safety Report 16587703 (Version 1)
Quarter: 2019Q3

REPORT INFORMATION
  Report Type: Spontaneous
  Country: AR (occurrence: AR)
  Receive Date: 20190717
  Receipt Date: 20190717
  Transmission Date: 20191004
  Serious: Yes (Hospitalization, Other)
  Sender: FDA-Public Use
  Company Number: AR-GLAXOSMITHKLINE-AR2019AMR117534

PATIENT
  Sex: Female

DRUGS (1)
  1. NUCALA [Suspect]
     Active Substance: MEPOLIZUMAB
     Indication: ASTHMA
     Dosage: UNK

REACTIONS (7)
  - Deafness [Unknown]
  - Malaise [Unknown]
  - Dyspnoea [Unknown]
  - Ear congestion [Not Recovered/Not Resolved]
  - Fatigue [Unknown]
  - Wheezing [Unknown]
  - Agitation [Unknown]
